FAERS Safety Report 9390839 (Version 4)
Quarter: 2013Q3

REPORT INFORMATION
  Report Type: Report from Study
  Country: JP (occurrence: JP)
  Receive Date: 20130709
  Receipt Date: 20130828
  Transmission Date: 20140515
  Serious: Yes (Hospitalization, Other)
  Sender: FDA-Public Use
  Company Number: PHHY2013JP071235

PATIENT
  Age: 39 Year
  Sex: Male
  Weight: 73 kg

DRUGS (28)
  1. CERTICAN [Suspect]
     Indication: RENAL TRANSPLANT
     Dosage: 1.5 MG, DAILY
     Route: 048
     Dates: start: 20121220, end: 20130310
  2. CERTICAN [Suspect]
     Dosage: 1 MG, DAILY
     Route: 048
     Dates: start: 20130311, end: 20130312
  3. CERTICAN [Suspect]
     Dosage: 0.5 MG, DAILY
     Route: 048
     Dates: start: 20130313, end: 20130314
  4. NEORAL [Concomitant]
     Indication: RENAL TRANSPLANT
     Dosage: 500 MG, UNK
     Route: 048
  5. NEORAL [Concomitant]
     Dosage: 500 MG, UNK
     Route: 048
  6. NEORAL [Concomitant]
     Dosage: 450 MG, UNK
     Route: 048
  7. NEORAL [Concomitant]
     Dosage: 300 MG, UNK
     Route: 048
  8. NEORAL [Concomitant]
     Dosage: 250 MG, UNK
     Route: 048
  9. NEORAL [Concomitant]
     Dosage: 200 MG, UNK
     Route: 048
  10. SIMULECT [Concomitant]
     Indication: RENAL TRANSPLANT
     Dosage: 20 MG, UNK
     Route: 042
  11. PREDNISOLONE SODIUM SUCCINATE [Concomitant]
     Indication: RENAL TRANSPLANT
     Dosage: 250 MG, UNK
     Route: 042
  12. SANDIMMUN [Concomitant]
     Indication: RENAL TRANSPLANT
     Dosage: 200 MG, UNK
     Route: 042
  13. CELLCEPT [Concomitant]
     Indication: RENAL TRANSPLANT
     Dosage: 500 MG, UNK
     Route: 048
  14. CELLCEPT [Concomitant]
     Dosage: 1 G, UNK
     Route: 048
  15. CELLCEPT [Concomitant]
     Dosage: 1.5 G, UNK
     Route: 048
     Dates: start: 20121220
  16. PREDONINE-1 [Concomitant]
     Indication: RENAL TRANSPLANT
     Dosage: 50 MG, UNK
     Route: 042
     Dates: start: 20121220, end: 20121220
  17. PREDONINE [Concomitant]
     Indication: RENAL TRANSPLANT
     Dosage: 50 MG, UNK
     Route: 048
     Dates: start: 20121221
  18. PREDONINE [Concomitant]
     Dosage: 40 MG, UNK
     Route: 048
     Dates: start: 20121221
  19. PREDONINE [Concomitant]
     Dosage: 30 MG, UNK
     Route: 048
     Dates: start: 20121221
  20. PREDONINE [Concomitant]
     Dosage: 20 MG, UNK
     Route: 048
     Dates: start: 20121221
  21. PREDONINE [Concomitant]
     Dosage: 10 MG, UNK
     Route: 048
     Dates: start: 20121221
  22. PREDONINE [Concomitant]
     Dosage: 5 MG, UNK
     Route: 048
     Dates: start: 20121221
  23. ALLOID G [Concomitant]
     Dosage: 45 ML, UNK
     Route: 048
  24. AMLODIPINE OD [Concomitant]
     Dosage: 5 MG, UNK
     Route: 048
  25. DEPAS [Concomitant]
     Dosage: 0.5 MG, UNK
     Route: 048
  26. BAYASPIRIN [Concomitant]
     Dosage: 100 MG, UNK
     Route: 048
  27. PARIET [Concomitant]
     Dosage: 10 MG, UNK
     Route: 048
  28. FERROMIA [Concomitant]
     Dosage: 50 MG, UNK
     Route: 048

REACTIONS (3)
  - Pericardial effusion [Recovering/Resolving]
  - Abdominal pain [Not Recovered/Not Resolved]
  - Mental disorder [Unknown]
